FAERS Safety Report 20513209 (Version 2)
Quarter: 2023Q1

REPORT INFORMATION
  Report Type: Spontaneous
  Country: US (occurrence: US)
  Receive Date: 20220224
  Receipt Date: 20230307
  Transmission Date: 20230418
  Serious: No
  Sender: FDA-Public Use
  Company Number: US-AMNEAL PHARMACEUTICALS-2021-AMRX-01625

PATIENT
  Age: 70 Year
  Sex: Female

DRUGS (3)
  1. RYTARY [Suspect]
     Active Substance: CARBIDOPA\LEVODOPA
     Indication: Parkinson^s disease
     Dosage: 61.25/245MG 2 CAPSULES, 5 /DAY
     Route: 048
     Dates: start: 20210501, end: 20210505
  2. RYTARY [Suspect]
     Active Substance: CARBIDOPA\LEVODOPA
     Dosage: 61.25/245MG 2 CAPSULES, 5 /DAY EVERY 3 HOURS
     Route: 048
  3. CARBIDOPA AND LEVODOPA [Concomitant]
     Active Substance: CARBIDOPA\LEVODOPA
     Indication: Product used for unknown indication
     Dosage: UNK
     Route: 065
     Dates: start: 20220303

REACTIONS (4)
  - Feeling abnormal [Recovering/Resolving]
  - Tremor [Unknown]
  - Anxiety [Unknown]
  - Balance disorder [Unknown]

NARRATIVE: CASE EVENT DATE: 20210501
